FAERS Safety Report 7268470-1 (Version None)
Quarter: 2010Q4

REPORT INFORMATION
  Report Type: 
  Country: None (occurrence: None)
  Receive Date: 20101206
  Receipt Date: 20101101
  Transmission Date: 20110411
  Serious: No
  Sender: FDA-Public Use
  Company Number: 2010SP058139

PATIENT
  Age: 26 Year
  Sex: Female

DRUGS (4)
  1. SAPHRIS [Suspect]
     Indication: BIPOLAR DISORDER
     Dosage: 10 MG; SL
     Route: 060
  2. DEPAKOTE [Concomitant]
  3. WELLBUTRIN [Concomitant]
  4. PROZAC [Concomitant]

REACTIONS (3)
  - ARTHRALGIA [None]
  - OEDEMA [None]
  - RED BLOOD CELL SEDIMENTATION RATE ABNORMAL [None]
